FAERS Safety Report 4617752-8 (Version None)
Quarter: 2005Q1

REPORT INFORMATION
  Report Type: 
  Country: None (occurrence: None)
  Receive Date: 20050324
  Receipt Date: 20050316
  Transmission Date: 20050727
  Serious: Yes (Other)
  Sender: FDA-Public Use
  Company Number: GB-BRISTOL-MYERS SQUIBB COMPANY-12904009

PATIENT
  Sex: Male

DRUGS (1)
  1. REYATAZ [Suspect]
     Route: 048
     Dates: start: 20040601

REACTIONS (1)
  - HYPERGLYCAEMIA [None]
